FAERS Safety Report 8531029-X (Version None)
Quarter: 2012Q3

REPORT INFORMATION
  Report Type: 
  Country: None (occurrence: None)
  Receive Date: 20120711
  Receipt Date: 20120629
  Transmission Date: 20120928
  Serious: Yes (Hospitalization)
  Sender: FDA-Public Use
  Company Number: ENTC2012-0297

PATIENT
  Age: 75 Year
  Sex: Female

DRUGS (3)
  1. ATARAX [Concomitant]
  2. PIASCLEDINE [Concomitant]
  3. STALEVO 50 [Suspect]
     Indication: PARKINSON'S DISEASE
     Dosage: 3 TABLETS (100/25/200 MG) DAILY
     Dates: start: 20070101

REACTIONS (4)
  - TREMOR [None]
  - GAIT DISTURBANCE [None]
  - DIZZINESS [None]
  - BALANCE DISORDER [None]
